FAERS Safety Report 12055260 (Version 4)
Quarter: 2016Q4

REPORT INFORMATION
  Report Type: Spontaneous
  Country: US (occurrence: US)
  Receive Date: 20160209
  Receipt Date: 20161028
  Transmission Date: 20170206
  Serious: Yes (Other)
  Sender: FDA-Public Use
  Company Number: US-BAYER-2016-022828

PATIENT
  Age: 63 Year
  Sex: Female
  Weight: 71.2 kg

DRUGS (4)
  1. CIPRO [Suspect]
     Active Substance: CIPROFLOXACIN HYDROCHLORIDE
  2. AVELOX [Suspect]
     Active Substance: MOXIFLOXACIN HYDROCHLORIDE
     Dosage: 400 MG, UNK
     Dates: start: 20040418
  3. LEVAQUIN [Suspect]
     Active Substance: LEVOFLOXACIN
     Dosage: 500 MG, UNK
     Dates: start: 20070102
  4. AVELOX [Suspect]
     Active Substance: MOXIFLOXACIN HYDROCHLORIDE
     Dosage: 400 MG, UNK
     Dates: start: 20061116

REACTIONS (8)
  - Neuropathy peripheral [Recovering/Resolving]
  - Pain [None]
  - Musculoskeletal injury [None]
  - Mental disorder [None]
  - Skin injury [None]
  - Cardiovascular disorder [None]
  - Nervous system disorder [None]
  - Peripheral nerve injury [None]

NARRATIVE: CASE EVENT DATE: 20070102
